FAERS Safety Report 14258717 (Version 1)
Quarter: 2017Q4

REPORT INFORMATION
  Report Type: Spontaneous
  Country: US (occurrence: None)
  Receive Date: 20171207
  Receipt Date: 20171207
  Transmission Date: 20180321
  Serious: Yes (Disabling)
  Sender: FDA-Public Use
  Company Number: None

PATIENT
  Age: 59 Year
  Sex: Female
  Weight: 56.25 kg

DRUGS (2)
  1. ZANTAC [Concomitant]
     Active Substance: RANITIDINE HYDROCHLORIDE
  2. ALPRAZOLAM. [Suspect]
     Active Substance: ALPRAZOLAM
     Indication: PANIC DISORDER
     Route: 048
     Dates: start: 20150513, end: 20160329

REACTIONS (10)
  - Condition aggravated [None]
  - Vomiting [None]
  - Therapy cessation [None]
  - Product substitution issue [None]
  - Nausea [None]
  - Panic disorder [None]
  - Tremor [None]
  - Muscle spasms [None]
  - Diarrhoea [None]
  - Seizure [None]

NARRATIVE: CASE EVENT DATE: 20150527
